FAERS Safety Report 7714009 (Version 4)
Quarter: 2012Q4

REPORT INFORMATION
  Report Type: 
  Country: CA (occurrence: CA)
  Receive Date: 20101216
  Receipt Date: 20121224
  Transmission Date: 20130627
  Serious: Yes (Hospitalization, Other)
  Sender: FDA-Public Use
  Company Number: PHHY2010CA83386

PATIENT
  Sex: Female

DRUGS (5)
  1. ACLASTA [Suspect]
     Indication: OSTEOPOROSIS
     Dosage: 5 mg/ 100 ml
     Route: 042
     Dates: start: 20081217
  2. ACLASTA [Suspect]
     Dosage: 5 mg/ 100 ml
     Route: 042
     Dates: start: 20091221
  3. ACLASTA [Suspect]
     Dosage: 5 mg/ 100 ml
     Route: 042
     Dates: start: 20101220
  4. ACLASTA [Suspect]
     Dosage: 5 mg/ 100 ml
     Route: 042
     Dates: start: 20111213
  5. ACLASTA [Suspect]
     Dosage: 5 mg/ 100 ml
     Route: 042
     Dates: start: 20121207

REACTIONS (5)
  - Cerebrovascular accident [Unknown]
  - Sepsis [Unknown]
  - Spinal fracture [Unknown]
  - Gait disturbance [Unknown]
  - Malaise [Unknown]
